FAERS Safety Report 10220514 (Version 1)
Quarter: 2014Q2

REPORT INFORMATION
  Report Type: Spontaneous
  Country: US (occurrence: US)
  Receive Date: 20140606
  Receipt Date: 20140606
  Transmission Date: 20141212
  Serious: Yes (Hospitalization)
  Sender: FDA-Public Use
  Company Number: US-BRISTOL-MYERS SQUIBB COMPANY-20838009

PATIENT
  Age: 50 Year
  Sex: Male
  Weight: 95.69 kg

DRUGS (4)
  1. COUMADIN [Suspect]
     Dates: start: 20140505
  2. COREG [Concomitant]
  3. ZOCOR [Concomitant]
  4. XANAX [Concomitant]
     Indication: ANXIETY DISORDER

REACTIONS (4)
  - Chest pain [Unknown]
  - International normalised ratio fluctuation [Unknown]
  - Eating disorder [Unknown]
  - Weight decreased [Unknown]
